FAERS Safety Report 10304297 (Version 1)
Quarter: 2014Q3

REPORT INFORMATION
  Report Type: Spontaneous
  Country: IN (occurrence: IN)
  Receive Date: 20140715
  Receipt Date: 20140715
  Transmission Date: 20150326
  Serious: Yes (Life-Threatening, Hospitalization)
  Sender: FDA-Public Use
  Company Number: IN-MACLEODS PHARMACEUTICALS US LTD-MAC2014001182

PATIENT

DRUGS (1)
  1. AMLODIPINE [Suspect]
     Active Substance: AMLODIPINE BESYLATE
     Indication: HYPERTENSION
     Dosage: 5 MG X 100 TABLETS
     Route: 048

REACTIONS (7)
  - Shock [Recovering/Resolving]
  - Intentional overdose [Recovering/Resolving]
  - Respiratory acidosis [Recovering/Resolving]
  - Hyperlactacidaemia [Recovering/Resolving]
  - Metabolic acidosis [Recovering/Resolving]
  - Anuria [Recovering/Resolving]
  - Somnolence [Unknown]
